FAERS Safety Report 8879273 (Version 1)
Quarter: 2012Q4

REPORT INFORMATION
  Report Type: 
  Country: JP (occurrence: JP)
  Receive Date: 20121101
  Receipt Date: 20121101
  Transmission Date: 20130627
  Serious: Yes (Hospitalization)
  Sender: FDA-Public Use
  Company Number: JP-009507513-1210JPN009926

PATIENT
  Age: 68 Year
  Sex: Female
  Weight: 60 kg

DRUGS (9)
  1. PEGINTRON [Suspect]
     Indication: HEPATITIS C
     Dosage: 100 Microgram per kilogram, qw
     Route: 058
     Dates: start: 20120904, end: 20121002
  2. REBETOL [Suspect]
     Indication: HEPATITIS C
     Dosage: 600 mg, qd
     Route: 048
     Dates: start: 20120904, end: 20121002
  3. REBETOL [Suspect]
     Dosage: 600,400mg,every 2 days
     Route: 048
     Dates: start: 20121003, end: 20121009
  4. TELAVIC [Suspect]
     Indication: HEPATITIS C
     Dosage: 1500 mg, qd
     Route: 048
     Dates: start: 20120904, end: 20121009
  5. GOODMIN [Concomitant]
     Indication: INSOMNIA
     Dosage: 0.25 mg, qd
     Route: 048
     Dates: end: 20121009
  6. D-ALPHA [Concomitant]
     Dosage: 1 mg, qd, Formulation: POR
     Route: 048
     Dates: end: 20121009
  7. CONIEL [Concomitant]
     Dosage: 4 mg, qd
     Route: 048
     Dates: end: 20121009
  8. LANSOPRAZOLE [Concomitant]
     Dosage: 15 mg, qd Formulation: POR
     Route: 048
     Dates: end: 20121009
  9. FERROMIA [Concomitant]
     Indication: PROPHYLAXIS
     Dosage: 50 mg, qd, Formulation: POR
     Route: 048
     Dates: start: 20120905, end: 20120925

REACTIONS (1)
  - Renal failure acute [Unknown]
